FAERS Safety Report 14342916 (Version 1)
Quarter: 2018Q1

REPORT INFORMATION
  Report Type: Spontaneous
  Country: FR (occurrence: FR)
  Receive Date: 20180102
  Receipt Date: 20180102
  Transmission Date: 20180509
  Serious: Yes (Other)
  Sender: FDA-Public Use
  Company Number: FR-ALSI-201700429

PATIENT
  Sex: Male

DRUGS (1)
  1. OXYGENE MEDICINAL LIQUIDE ALSF, GAZ POUR INHALATION OXYGEN [Suspect]
     Active Substance: OXYGEN
     Indication: RESPIRATORY DISTRESS
     Route: 050

REACTIONS (2)
  - Thermal burn [Recovering/Resolving]
  - Intentional product misuse [Recovering/Resolving]

NARRATIVE: CASE EVENT DATE: 20171121
